FAERS Safety Report 24666036 (Version 1)
Quarter: 2024Q4

REPORT INFORMATION
  Report Type: Spontaneous
  Country: TR (occurrence: TR)
  Receive Date: 20241126
  Receipt Date: 20241126
  Transmission Date: 20250114
  Serious: Yes (Other)
  Sender: AMGEN
  Company Number: TR-AMGEN-TURSP2024230523

PATIENT
  Age: 39 Year
  Sex: Male

DRUGS (7)
  1. ADALIMUMAB [Suspect]
     Active Substance: ADALIMUMAB
     Indication: Behcet^s syndrome
     Dosage: 40 MILLIGRAM, QWK
     Route: 058
     Dates: start: 2022
  2. ADALIMUMAB [Suspect]
     Active Substance: ADALIMUMAB
     Indication: Uveitis
  3. INFLIXIMAB [Concomitant]
     Active Substance: INFLIXIMAB
  4. INTERFERON ALFA-2B [Concomitant]
     Active Substance: INTERFERON ALFA-2B
  5. INTERFERON ALFA-2A [Concomitant]
     Active Substance: INTERFERON ALFA-2A
  6. PEGINTERFERON ALFA-2A [Concomitant]
     Active Substance: PEGINTERFERON ALFA-2A
  7. PREDNISOLONE [Concomitant]
     Active Substance: PREDNISOLONE

REACTIONS (7)
  - Idiopathic intracranial hypertension [Unknown]
  - Cerebral venous sinus thrombosis [Unknown]
  - Drug ineffective for unapproved indication [Unknown]
  - Acute phase reaction [Unknown]
  - Arthritis [Unknown]
  - Erythema nodosum [Unknown]
  - Off label use [Unknown]

NARRATIVE: CASE EVENT DATE: 20220101
